FAERS Safety Report 5253231-5 (Version None)
Quarter: 2007Q1

REPORT INFORMATION
  Report Type: 
  Country: None (occurrence: None)
  Receive Date: 20070301
  Receipt Date: 20070221
  Transmission Date: 20070707
  Serious: Yes (Hospitalization)
  Sender: FDA-Public Use
  Company Number: JP-JNJFOC-20051005656

PATIENT
  Sex: Male
  Weight: 39 kg

DRUGS (5)
  1. REMICADE [Suspect]
     Route: 042
  2. REMICADE [Suspect]
     Indication: CROHN'S DISEASE
     Route: 042
  3. PENTASA [Suspect]
     Indication: CROHN'S DISEASE
     Route: 048
  4. MIYA BM [Concomitant]
     Route: 048
  5. FERROMIA [Concomitant]
     Indication: ANAEMIA
     Route: 048

REACTIONS (1)
  - THROMBOCYTOPENIA [None]
